FAERS Safety Report 10953335 (Version 2)
Quarter: 2015Q2

REPORT INFORMATION
  Report Type: Spontaneous
  Country: US (occurrence: US)
  Receive Date: 20150325
  Receipt Date: 20150512
  Transmission Date: 20150821
  Serious: No
  Sender: FDA-Public Use
  Company Number: US-PFIZER INC-2015099913

PATIENT
  Age: 57 Year
  Sex: Female

DRUGS (8)
  1. OMEPRAZOLE. [Concomitant]
     Active Substance: OMEPRAZOLE
     Dosage: 20 MG, 2X/DAY
     Dates: start: 2000
  2. LYRICA [Suspect]
     Active Substance: PREGABALIN
     Indication: DIABETIC NEUROPATHY
     Dosage: 150 MG, 1X/DAY
     Dates: start: 2006
  3. LYRICA [Suspect]
     Active Substance: PREGABALIN
     Dosage: 150 MG, ALTERNATE DAY, (RECENTLY DROPPED TO 150MG EVERY OTHER DAY)
  4. CYMBALTA [Concomitant]
     Active Substance: DULOXETINE HYDROCHLORIDE
     Dosage: 60 MG, 2X/DAY
     Dates: start: 2005
  5. SIMVASTATIN. [Concomitant]
     Active Substance: SIMVASTATIN
     Dosage: 20 MG, 1X/DAY
     Dates: start: 2000
  6. BUSPIRONE [Concomitant]
     Active Substance: BUSPIRONE HYDROCHLORIDE
     Dosage: 15 MG, 2X/DAY
     Dates: start: 2005
  7. LISINOPRIL. [Concomitant]
     Active Substance: LISINOPRIL
     Dosage: 5 MG, 1X/DAY
     Dates: start: 2000
  8. SYNTHROID [Concomitant]
     Active Substance: LEVOTHYROXINE SODIUM
     Dosage: 88 MG, 1X/DAY
     Dates: start: 2000

REACTIONS (5)
  - Vision blurred [Not Recovered/Not Resolved]
  - Somnolence [Not Recovered/Not Resolved]
  - Impaired driving ability [Not Recovered/Not Resolved]
  - Fatigue [Not Recovered/Not Resolved]
  - Reading disorder [Not Recovered/Not Resolved]

NARRATIVE: CASE EVENT DATE: 2006
